FAERS Safety Report 9526126 (Version 3)
Quarter: 2013Q4

REPORT INFORMATION
  Report Type: Spontaneous
  Country: JP (occurrence: JP)
  Receive Date: 20130916
  Receipt Date: 20131007
  Transmission Date: 20140711
  Serious: Yes (Other)
  Sender: FDA-Public Use
  Company Number: JP-JNJFOC-20130906890

PATIENT
  Age: 83 Year
  Sex: Female

DRUGS (3)
  1. TRAMCET [Suspect]
     Indication: BACK PAIN
     Dosage: 1 PER 1 DAY
     Route: 048
     Dates: start: 20130909, end: 20130909
  2. PRIMPERAN [Concomitant]
     Route: 065
  3. CELECOX [Concomitant]
     Route: 048

REACTIONS (1)
  - Suicide attempt [Recovered/Resolved]
